FAERS Safety Report 24702805 (Version 1)
Quarter: 2024Q4

REPORT INFORMATION
  Report Type: Spontaneous
  Country: US (occurrence: US)
  Receive Date: 20241205
  Receipt Date: 20241205
  Transmission Date: 20250115
  Serious: No
  Sender: PACIRA
  Company Number: US-ORG100016242-2024000156

PATIENT
  Age: 71 Year
  Sex: Female

DRUGS (1)
  1. ZILRETTA [Suspect]
     Active Substance: TRIAMCINOLONE ACETONIDE
     Indication: Osteoarthritis
     Dosage: SINGLE DOSE INJECTION
     Route: 065
     Dates: start: 202309, end: 202309

REACTIONS (1)
  - Arthralgia [Not Recovered/Not Resolved]
